FAERS Safety Report 4359126-3 (Version None)
Quarter: 2004Q2

REPORT INFORMATION
  Report Type: 
  Country: None (occurrence: None)
  Receive Date: 20040512
  Receipt Date: 20040428
  Transmission Date: 20050107
  Serious: Yes (Life-Threatening)
  Sender: FDA-Public Use
  Company Number: 2004AP02156

PATIENT
  Age: 16 Year
  Sex: Male
  Weight: 48 kg

DRUGS (1)
  1. MARCAINE [Suspect]
     Indication: SPINAL ANAESTHESIA
     Dosage: 2 ML IT
     Dates: start: 20040405, end: 20040405

REACTIONS (9)
  - CARDIAC ARREST [None]
  - CREPITATIONS [None]
  - CYANOSIS [None]
  - HEART RATE INCREASED [None]
  - LOSS OF CONSCIOUSNESS [None]
  - MUSCLE SPASTICITY [None]
  - PULMONARY OEDEMA [None]
  - SUPRAVENTRICULAR TACHYCARDIA [None]
  - TONIC CONVULSION [None]
